FAERS Safety Report 6603331-X (Version None)
Quarter: 2010Q1

REPORT INFORMATION
  Report Type: 
  Country: None (occurrence: None)
  Receive Date: 20100226
  Receipt Date: 20090130
  Transmission Date: 20100710
  Serious: No
  Sender: FDA-Public Use
  Company Number: A0766115A

PATIENT
  Age: 76 Year
  Sex: Female

DRUGS (5)
  1. VALTREX [Suspect]
     Indication: HERPES ZOSTER
     Route: 048
     Dates: end: 20090130
  2. MULTI-VITAMIN [Concomitant]
  3. SULAR [Concomitant]
  4. ASPIRIN [Concomitant]
  5. DARVOCET [Concomitant]

REACTIONS (1)
  - URINARY RETENTION [None]
